FAERS Safety Report 18101946 (Version 9)
Quarter: 2022Q1

REPORT INFORMATION
  Report Type: Spontaneous
  Country: US (occurrence: US)
  Receive Date: 20200802
  Receipt Date: 20220216
  Transmission Date: 20220423
  Serious: Yes (Life-Threatening, Hospitalization, Disabling, Other)
  Sender: FDA-Public Use
  Company Number: US-BIOGEN-2020BI00904656

PATIENT
  Sex: Female

DRUGS (5)
  1. TECFIDERA [Suspect]
     Active Substance: DIMETHYL FUMARATE
     Indication: Multiple sclerosis
     Dosage: STARTING DOSE
     Route: 048
     Dates: start: 20130719
  2. TECFIDERA [Suspect]
     Active Substance: DIMETHYL FUMARATE
     Dosage: STARTING DOSE
     Route: 048
  3. TECFIDERA [Suspect]
     Active Substance: DIMETHYL FUMARATE
     Dosage: MAINTENANCE DOSE
     Route: 048
  4. TECFIDERA [Suspect]
     Active Substance: DIMETHYL FUMARATE
     Route: 048
  5. TECFIDERA [Suspect]
     Active Substance: DIMETHYL FUMARATE
     Route: 065
     Dates: start: 20130719

REACTIONS (15)
  - Lower limb fracture [Recovered/Resolved]
  - Pleural effusion [Not Recovered/Not Resolved]
  - Device related sepsis [Recovered/Resolved]
  - Myocardial infarction [Recovered/Resolved]
  - Respiratory disorder [Not Recovered/Not Resolved]
  - Gastrointestinal procedural complication [Unknown]
  - Paralysis [Not Recovered/Not Resolved]
  - Gangrene [Recovered/Resolved]
  - Starvation [Recovered/Resolved]
  - Amnesia [Recovered/Resolved]
  - Speech disorder [Not Recovered/Not Resolved]
  - Rib fracture [Recovered/Resolved]
  - Skin ulcer [Not Recovered/Not Resolved]
  - Decubitus ulcer [Not Recovered/Not Resolved]
  - Nephrolithiasis [Not Recovered/Not Resolved]

NARRATIVE: CASE EVENT DATE: 20150101
